FAERS Safety Report 5118736-6 (Version None)
Quarter: 2006Q3

REPORT INFORMATION
  Report Type: 
  Country: None (occurrence: None)
  Receive Date: 20060927
  Receipt Date: 20060919
  Transmission Date: 20061208
  Serious: Yes (Hospitalization)
  Sender: FDA-Public Use
  Company Number: 2006113599

PATIENT
  Age: 19 Month
  Sex: Female
  Weight: 11 kg

DRUGS (1)
  1. SERTRALINE [Suspect]
     Dosage: (500 MG,ONCE), ORAL
     Route: 048

REACTIONS (2)
  - ACCIDENTAL DRUG INTAKE BY CHILD [None]
  - ACCIDENTAL OVERDOSE [None]
